FAERS Safety Report 18924920 (Version 1)
Quarter: 2021Q1

REPORT INFORMATION
  Report Type: Spontaneous
  Country: CO (occurrence: CO)
  Receive Date: 20210222
  Receipt Date: 20210222
  Transmission Date: 20210420
  Serious: Yes (Death)
  Sender: FDA-Public Use
  Company Number: CO-PFIZER INC-2021142899

PATIENT
  Sex: Female

DRUGS (2)
  1. ANIDULAFUNGIN [Suspect]
     Active Substance: ANIDULAFUNGIN
     Dosage: UNK
  2. CASPOFUNGIN [Suspect]
     Active Substance: CASPOFUNGIN
     Dosage: UNK

REACTIONS (1)
  - Hepatic failure [Fatal]
